FAERS Safety Report 6636505-2 (Version None)
Quarter: 2010Q1

REPORT INFORMATION
  Report Type: 
  Country: None (occurrence: None)
  Receive Date: 20100310
  Receipt Date: 20100222
  Transmission Date: 20100710
  Serious: Yes (Death)
  Sender: FDA-Public Use
  Company Number: 520427

PATIENT
  Sex: Male

DRUGS (3)
  1. OXALIPLATIN HOSPIRA 5 MG/ML POWDER FOR SOL FOR INF (OXALIPLATIN) [Suspect]
     Indication: COLORECTAL CANCER METASTATIC
     Dosage: NOT REPORTED, UNKNOWN, NOT REPORTED
     Dates: start: 20100101
  2. AVASTIN [Suspect]
     Indication: COLORECTAL CANCER METASTATIC
     Dosage: 5 MG/KG, UNKNOWN, NOT REPORTED
     Dates: start: 20100101
  3. CAPECITABINE [Suspect]
     Indication: COLORECTAL CANCER METASTATIC
     Dosage: NOT REPORTED, UNKNOWN, NOT REPORTED
     Dates: start: 20100101

REACTIONS (1)
  - SEPSIS [None]
